FAERS Safety Report 21573006 (Version 3)
Quarter: 2022Q4

REPORT INFORMATION
  Report Type: Report from Study
  Country: US (occurrence: US)
  Receive Date: 20221109
  Receipt Date: 20221130
  Transmission Date: 20230112
  Serious: No
  Sender: FDA-Public Use
  Company Number: US-ABBVIE-4193656

PATIENT
  Sex: Female

DRUGS (1)
  1. IMBRUVICA [Suspect]
     Active Substance: IBRUTINIB
     Indication: Chronic lymphocytic leukaemia
     Route: 048

REACTIONS (11)
  - Bone pain [Recovering/Resolving]
  - Dry eye [Recovering/Resolving]
  - Epistaxis [Unknown]
  - Feeling abnormal [Recovering/Resolving]
  - Vitreous floaters [Recovering/Resolving]
  - Myalgia [Unknown]
  - Joint stiffness [Recovering/Resolving]
  - Arthralgia [Unknown]
  - Musculoskeletal stiffness [Recovering/Resolving]
  - Eye inflammation [Unknown]
  - White blood cell count decreased [Unknown]

NARRATIVE: CASE EVENT DATE: 20220101
